FAERS Safety Report 23964146 (Version 1)
Quarter: 2024Q2

REPORT INFORMATION
  Report Type: Spontaneous
  Country: US (occurrence: None)
  Receive Date: 20240611
  Receipt Date: 20240611
  Transmission Date: 20240716
  Serious: Yes (Disabling, Other)
  Sender: FDA-Public Use
  Company Number: None

PATIENT
  Age: 32 Year
  Sex: Female

DRUGS (1)
  1. VENLAFAXINE [Suspect]
     Active Substance: VENLAFAXINE HYDROCHLORIDE
     Indication: Anxiety
     Dates: end: 20200517

REACTIONS (9)
  - Emotional poverty [None]
  - Alcohol use [None]
  - Mania [None]
  - Accidental overdose [None]
  - Extra dose administered [None]
  - Aggression [None]
  - Insomnia [None]
  - Weight decreased [None]
  - Dental caries [None]

NARRATIVE: CASE EVENT DATE: 20200112
